FAERS Safety Report 5514554-5 (Version None)
Quarter: 2007Q4

REPORT INFORMATION
  Report Type: 
  Country: None (occurrence: None)
  Receive Date: 20071113
  Receipt Date: 20071107
  Transmission Date: 20080405
  Serious: Yes (Death)
  Sender: FDA-Public Use
  Company Number: A0694020A

PATIENT
  Age: 23 Year
  Sex: Male

DRUGS (1)
  1. PAXIL [Suspect]
     Indication: DEPRESSION
     Route: 048

REACTIONS (6)
  - ABNORMAL BEHAVIOUR [None]
  - COMPLETED SUICIDE [None]
  - DEPRESSION [None]
  - DISSOCIATION [None]
  - HOMICIDE [None]
  - TREATMENT NONCOMPLIANCE [None]
